FAERS Safety Report 6220757 (Version 6)
Quarter: 2020Q3

REPORT INFORMATION
  Report Type: Spontaneous
  Country: GB (occurrence: GB)
  Receive Date: 20070123
  Receipt Date: 20071214
  Transmission Date: 20201104
  Serious: Yes (Life-Threatening, Hospitalization, Congenital Anomaly, Other)
  Sender: FDA-Public Use
  Company Number: B0454969A

PATIENT
  Age: 7 Month
  Sex: Female
  Weight: 5 kg

DRUGS (4)
  1. FERROUS SULFATE. [Suspect]
     Active Substance: FERROUS SULFATE
  2. VIRAMUNE [Suspect]
     Active Substance: NEVIRAPINE
     Indication: RETROVIRAL INFECTION
     Dosage: 400MG PER DAY
     Dates: start: 20050922, end: 20060509
  3. ZIDOVUDINE. [Suspect]
     Active Substance: ZIDOVUDINE
     Indication: PROPHYLAXIS AGAINST HIV INFECTION
     Dosage: 4MG TWICE PER DAY
     Dates: start: 200607, end: 200608
  4. COMBIVIR [Suspect]
     Active Substance: LAMIVUDINE\ZIDOVUDINE
     Indication: HIV INFECTION
     Dates: start: 200509

REACTIONS (14)
  - Acidosis [Unknown]
  - Maternal exposure during pregnancy [Unknown]
  - Rhinitis [Unknown]
  - Ammonia increased [Unknown]
  - Metabolic acidosis [Recovered/Resolved with Sequelae]
  - Underweight [Recovered/Resolved with Sequelae]
  - Foetal growth restriction [Unknown]
  - Eating disorder [Unknown]
  - Grunting [Unknown]
  - Vitamin B12 deficiency [Recovered/Resolved with Sequelae]
  - Lethargy [Unknown]
  - Depressed level of consciousness [Unknown]
  - Pallor [Unknown]
  - Methylmalonic aciduria [Recovered/Resolved with Sequelae]

NARRATIVE: CASE EVENT DATE: 20061224
